FAERS Safety Report 18605763 (Version 1)
Quarter: 2020Q4

REPORT INFORMATION
  Report Type: Spontaneous
  Country: DO (occurrence: DO)
  Receive Date: 20201211
  Receipt Date: 20201211
  Transmission Date: 20210114
  Serious: Yes (Other)
  Sender: FDA-Public Use
  Company Number: DO-PFIZER INC-2020165831

PATIENT
  Age: 49 Year
  Sex: Female

DRUGS (2)
  1. XELJANZ [Suspect]
     Active Substance: TOFACITINIB CITRATE
     Dosage: UNK
  2. XELJANZ [Suspect]
     Active Substance: TOFACITINIB CITRATE
     Dosage: UNK

REACTIONS (8)
  - Hernia [Unknown]
  - Renal disorder [Unknown]
  - Food allergy [Unknown]
  - Visual impairment [Unknown]
  - Nephrolithiasis [Unknown]
  - Pain [Unknown]
  - Lumbar hernia [Unknown]
  - Lumbar spinal stenosis [Unknown]

NARRATIVE: CASE EVENT DATE: 2019
